FAERS Safety Report 20541311 (Version 1)
Quarter: 2022Q1

REPORT INFORMATION
  Report Type: Spontaneous
  Country: DE (occurrence: DE)
  Receive Date: 20220302
  Receipt Date: 20220302
  Transmission Date: 20220423
  Serious: Yes (Life-Threatening, Other)
  Sender: FDA-Public Use
  Company Number: None

PATIENT
  Age: 46 Year
  Sex: Male
  Weight: 80 kg

DRUGS (12)
  1. HEPARIN [Suspect]
     Active Substance: HEPARIN SODIUM
     Indication: Lung assist device therapy
     Dosage: UNK (1300 E/H)
     Route: 042
     Dates: start: 2020
  2. HEPARIN [Suspect]
     Active Substance: HEPARIN SODIUM
     Indication: Pulmonary embolism
  3. TIGECYCLINE [Concomitant]
     Active Substance: TIGECYCLINE
     Indication: Pneumonia acinetobacter
     Dosage: 100 MG, Q12H (100MG 2X TGL)
     Route: 042
     Dates: start: 20200916
  4. SPIRONOLACTONE [Concomitant]
     Active Substance: SPIRONOLACTONE
     Indication: Polyuria
     Dosage: 100 MG, QD (50MG 2XTGL)
     Route: 048
     Dates: start: 20200919
  5. PANTOPRAZOLE [Concomitant]
     Active Substance: PANTOPRAZOLE
     Indication: Product used for unknown indication
     Dosage: 40 MG
     Route: 042
     Dates: start: 20200910
  6. COLISTIN [Concomitant]
     Active Substance: COLISTIN
     Indication: Pneumonia acinetobacter
     Dosage: UNK (5MIO E 3XTGL)
     Route: 042
     Dates: start: 20200616
  7. CLONIDINE [Concomitant]
     Active Substance: CLONIDINE
     Indication: Sedation
     Dosage: UNK (150 MCG/H)
     Route: 042
     Dates: start: 20200914
  8. SUFENTANIL [Concomitant]
     Active Substance: SUFENTANIL
     Indication: Sedation
     Dosage: UNK (100 MCG/H)
     Route: 042
     Dates: start: 20200910
  9. SUFENTANIL [Concomitant]
     Active Substance: SUFENTANIL
     Indication: Analgesic therapy
  10. MIDAZOLAM [Concomitant]
     Active Substance: MIDAZOLAM
     Indication: Sedation
     Dosage: 30 UNK
     Route: 042
     Dates: start: 20200913
  11. CISATRACURIUM [Concomitant]
     Active Substance: CISATRACURIUM
     Indication: Feeling of relaxation
     Dosage: UNK (28 MG/H)
     Route: 042
     Dates: start: 20200914
  12. CISATRACURIUM [Concomitant]
     Active Substance: CISATRACURIUM
     Indication: Acute respiratory distress syndrome

REACTIONS (1)
  - Haemorrhage intracranial [Unknown]

NARRATIVE: CASE EVENT DATE: 20200919
